FAERS Safety Report 13550404 (Version 1)
Quarter: 2017Q2

REPORT INFORMATION
  Report Type: Spontaneous
  Country: CN (occurrence: CN)
  Receive Date: 20170516
  Receipt Date: 20170516
  Transmission Date: 20170830
  Serious: Yes (Hospitalization, Disabling)
  Sender: FDA-Public Use
  Company Number: PHHY2017CN070096

PATIENT
  Age: 79 Year
  Sex: Female
  Weight: 58 kg

DRUGS (2)
  1. TRILEPTAL [Suspect]
     Active Substance: OXCARBAZEPINE
     Indication: TRIGEMINAL NEURALGIA
     Dosage: 0.15 G, BID
     Route: 048
     Dates: start: 20170308, end: 20170312
  2. TRILEPTAL [Suspect]
     Active Substance: OXCARBAZEPINE
     Dosage: 0.3 G, BID
     Route: 048
     Dates: start: 20170312, end: 20170316

REACTIONS (4)
  - Neutrophil count decreased [Recovered/Resolved]
  - Chills [Recovered/Resolved]
  - White blood cell count decreased [Recovered/Resolved]
  - Pyrexia [Recovered/Resolved]

NARRATIVE: CASE EVENT DATE: 20170316
